FAERS Safety Report 10262075 (Version 1)
Quarter: 2014Q2

REPORT INFORMATION
  Report Type: Spontaneous
  Country: US (occurrence: None)
  Receive Date: 20140624
  Receipt Date: 20140624
  Transmission Date: 20141212
  Serious: Yes (Hospitalization)
  Sender: FDA-Public Use
  Company Number: None

PATIENT
  Age: 62 Year
  Sex: Male
  Weight: 90.1 kg

DRUGS (4)
  1. DAPTOMYCIN [Suspect]
     Indication: EXTRADURAL ABSCESS
     Dosage: 800 MG, IV, FREQUENCY OTHER
     Route: 042
     Dates: start: 20140516, end: 20140609
  2. DAPTOMYCIN [Suspect]
     Indication: BACTERAEMIA
     Dosage: 800 MG, IV, FREQUENCY OTHER
     Route: 042
     Dates: start: 20140516, end: 20140609
  3. DAPTOMYCIN [Suspect]
     Indication: OSTEOMYELITIS
     Dosage: 800 MG, IV, FREQUENCY OTHER
     Route: 042
     Dates: start: 20140516, end: 20140609
  4. DAPTOMYCIN [Suspect]
     Indication: STAPHYLOCOCCAL INFECTION
     Dosage: 800 MG, IV, FREQUENCY OTHER
     Route: 042
     Dates: start: 20140516, end: 20140609

REACTIONS (2)
  - Myalgia [None]
  - Blood creatine phosphokinase increased [None]
